FAERS Safety Report 17614393 (Version 2)
Quarter: 2020Q2

REPORT INFORMATION
  Report Type: Spontaneous
  Country: NL (occurrence: NL)
  Receive Date: 20200402
  Receipt Date: 20200403
  Transmission Date: 20200713
  Serious: Yes (Death, Hospitalization)
  Sender: FDA-Public Use
  Company Number: NL-ROCHE-2575332

PATIENT
  Sex: Male
  Weight: 56 kg

DRUGS (6)
  1. RITUXIMAB. [Suspect]
     Active Substance: RITUXIMAB
     Indication: MANTLE CELL LYMPHOMA RECURRENT
     Route: 041
     Dates: start: 20171106, end: 20190904
  2. RHINOCORT [Concomitant]
     Active Substance: BUDESONIDE
     Dosage: NEUSSPRAY (INHALATIEPOEDER NASAAL), 0,1 MG/DOSIS (MILLIGRAM PER DOSIS)
     Route: 065
  3. OMEPRAZOLE. [Concomitant]
     Active Substance: OMEPRAZOLE
     Dosage: MAAGSAPRESISTENTE CAPSULE, 40 MG (MILLIGRAM)
     Route: 065
  4. SALBUTAMOL [Concomitant]
     Active Substance: ALBUTEROL
     Dosage: INHALATIEPOEDER, 200 MCG/DOSIS (MICROGRAM PER DOSIS)
     Route: 065
  5. MACROGOL [Concomitant]
     Active Substance: POLYETHYLENE GLYCOLS
     Dosage: POEDER VOOR DRANK
     Route: 065
  6. PARACETAMOL [Concomitant]
     Active Substance: ACETAMINOPHEN
     Dosage: TABLET, 500 MG (MILLIGRAM)
     Route: 065

REACTIONS (3)
  - Respiratory failure [Fatal]
  - Deafness [Fatal]
  - Encephalitis viral [Fatal]
